FAERS Safety Report 23983186 (Version 2)
Quarter: 2024Q2

REPORT INFORMATION
  Report Type: Spontaneous
  Country: US (occurrence: US)
  Receive Date: 20240617
  Receipt Date: 20240621
  Transmission Date: 20240716
  Serious: No
  Sender: FDA-Public Use
  Company Number: US-IPSEN Group, Research and Development-2024-11427

PATIENT
  Age: 33 Year
  Sex: Female

DRUGS (6)
  1. DYSPORT [Suspect]
     Active Substance: ABOBOTULINUMTOXINA
     Indication: Skin wrinkling
     Route: 065
     Dates: start: 202401, end: 202401
  2. DYSPORT [Suspect]
     Active Substance: ABOBOTULINUMTOXINA
     Indication: Off label use
     Dosage: 36 UNITS TO THE PATIENT^S FRONTALIS ONLY
     Route: 065
     Dates: start: 20240327, end: 20240327
  3. DYSPORT [Suspect]
     Active Substance: ABOBOTULINUMTOXINA
     Indication: Skin wrinkling
     Dosage: 60 U GLABELLA, 30 U FRONTALIS, 18 U CROW^S FEET PER SITE
     Route: 030
     Dates: start: 20240514, end: 20240514
  4. DYSPORT [Suspect]
     Active Substance: ABOBOTULINUMTOXINA
     Indication: Skin wrinkling
  5. AZATHIOPRINE [Concomitant]
     Active Substance: AZATHIOPRINE
  6. INFLIXIMAB [Concomitant]
     Active Substance: INFLIXIMAB

REACTIONS (6)
  - Injection site discolouration [Unknown]
  - Injection site indentation [Unknown]
  - Drug ineffective [Unknown]
  - Off label use [Unknown]
  - Off label use [Unknown]
  - Prescribed overdose [Unknown]

NARRATIVE: CASE EVENT DATE: 20240101
